FAERS Safety Report 6934962-5 (Version None)
Quarter: 2010Q3

REPORT INFORMATION
  Report Type: 
  Country: None (occurrence: None)
  Receive Date: 20100821
  Receipt Date: 20100816
  Transmission Date: 20110219
  Serious: Yes (Other)
  Sender: FDA-Public Use
  Company Number: CHPA2010BR13189

PATIENT
  Sex: Female
  Weight: 100 kg

DRUGS (1)
  1. BUFFERIN EXTRA STRENGTH (NCH) [Suspect]
     Indication: OSTEOARTHRITIS
     Dosage: 500 MG, Q8H PRN
     Route: 048
     Dates: end: 20100815

REACTIONS (1)
  - CHRONIC OBSTRUCTIVE PULMONARY DISEASE [None]
